FAERS Safety Report 25815673 (Version 2)
Quarter: 2025Q3

REPORT INFORMATION
  Report Type: Report from Study
  Country: CA (occurrence: CA)
  Receive Date: 20250918
  Receipt Date: 20250925
  Transmission Date: 20251021
  Serious: Yes (Hospitalization)
  Sender: SAMSUNG BIOEPIS
  Company Number: CA-SAMSUNG BIOEPIS-SB-2025-31206

PATIENT
  Age: 78 Year
  Sex: Female
  Weight: 78 kg

DRUGS (1)
  1. RENFLEXIS [Suspect]
     Active Substance: INFLIXIMAB-ABDA
     Indication: Crohn^s disease
     Route: 042
     Dates: start: 20250610

REACTIONS (5)
  - Cardiac failure [Unknown]
  - Electrolyte imbalance [Unknown]
  - Abdominal pain [Recovering/Resolving]
  - Urinary tract infection [Unknown]
  - Blood pressure decreased [Recovered/Resolved]
